FAERS Safety Report 10048027 (Version 1)
Quarter: 2014Q1

REPORT INFORMATION
  Report Type: Spontaneous
  Country: AE (occurrence: AE)
  Receive Date: 20140331
  Receipt Date: 20140331
  Transmission Date: 20141002
  Serious: Yes (Other)
  Sender: FDA-Public Use
  Company Number: AE-WATSON-2014-05655

PATIENT
  Age: 45 Year
  Sex: Male

DRUGS (2)
  1. ISONIAZID [Suspect]
     Indication: PULMONARY TUBERCULOSIS
     Dosage: 300 MG, DAILY
     Route: 065
  2. RIFAMPICIN [Concomitant]
     Indication: PULMONARY TUBERCULOSIS
     Dosage: 450 MG, DAILY
     Route: 065

REACTIONS (1)
  - Gynaecomastia [Recovered/Resolved]
